FAERS Safety Report 21537161 (Version 1)
Quarter: 2022Q4

REPORT INFORMATION
  Report Type: Spontaneous
  Country: US (occurrence: None)
  Receive Date: 20221101
  Receipt Date: 20221101
  Transmission Date: 20230112
  Serious: No
  Sender: FDA-Public Use
  Company Number: 2022A339532

PATIENT
  Sex: Female

DRUGS (2)
  1. SYMBICORT [Suspect]
     Active Substance: BUDESONIDE\FORMOTEROL FUMARATE DIHYDRATE
     Indication: Asthma
     Dosage: 160/4.5 MCG., 2 PUFFS TWICE A DAY
     Route: 055
     Dates: start: 20220101
  2. SYMBICORT [Suspect]
     Active Substance: BUDESONIDE\FORMOTEROL FUMARATE DIHYDRATE
     Indication: Asthma
     Dosage: 80/4.5 MCG., 2 PUFFS TWICE A DAY,
     Route: 055

REACTIONS (2)
  - Glaucoma [Not Recovered/Not Resolved]
  - Asthenopia [Not Recovered/Not Resolved]
